FAERS Safety Report 17902271 (Version 2)
Quarter: 2020Q2

REPORT INFORMATION
  Report Type: Spontaneous
  Country: DE (occurrence: DE)
  Receive Date: 20200616
  Receipt Date: 20200629
  Transmission Date: 20200714
  Serious: Yes (Other)
  Sender: FDA-Public Use
  Company Number: DE-BAXTER-2020BAX011837

PATIENT
  Age: 68 Year
  Sex: Female
  Weight: 65 kg

DRUGS (9)
  1. SUFENTA [Suspect]
     Active Substance: SUFENTANIL CITRATE
     Indication: GENERAL ANAESTHESIA
     Route: 065
  2. PROPOFOL CLARIS 2 % (20 MG/ML) MCT EMULSION ZUR INJEKTION/INFUSION [Suspect]
     Active Substance: PROPOFOL
     Indication: GENERAL ANAESTHESIA
     Dosage: 150 MILLIGRAM
     Route: 065
  3. SUFENTA [Suspect]
     Active Substance: SUFENTANIL CITRATE
     Dosage: 1.5 HOURS
     Route: 065
  4. CEFAZOLIN [Concomitant]
     Active Substance: CEFAZOLIN
     Indication: PRODUCT USED FOR UNKNOWN INDICATION
     Dosage: 2 GRAM
     Route: 065
  5. ATRACURIUM [Suspect]
     Active Substance: ATRACURIUM
     Indication: GENERAL ANAESTHESIA
     Dosage: 25 MILLIGRAM
     Route: 065
  6. GRANISETRON [Concomitant]
     Active Substance: GRANISETRON
     Indication: PROCEDURAL NAUSEA
     Dosage: 1 MILLIGRAM
     Route: 065
  7. VALSARTAN. [Concomitant]
     Active Substance: VALSARTAN
     Indication: HYPERTENSION
     Dosage: 20 MILLIGRAM
     Route: 065
  8. DEXAMETHASONE. [Concomitant]
     Active Substance: DEXAMETHASONE
     Indication: PROCEDURAL NAUSEA
     Dosage: 4 MILLIGRAM
     Route: 065
  9. SEVOFLURAN BAXTER 100 % FLUSSIGKEIT ZUR HERSTELLUNG EINES DAMPFS ZUR I [Suspect]
     Active Substance: SEVOFLURANE
     Indication: GENERAL ANAESTHESIA
     Route: 065

REACTIONS (2)
  - Trigemino-cardiac reflex [Recovered/Resolved]
  - Cardiac arrest [Recovered/Resolved]
